FAERS Safety Report 25954309 (Version 2)
Quarter: 2025Q4

REPORT INFORMATION
  Report Type: Report from Study
  Country: US (occurrence: US)
  Receive Date: 20251023
  Receipt Date: 20251025
  Transmission Date: 20260118
  Serious: Yes (Death)
  Sender: ABBVIE
  Company Number: US-ABBVIE-6515225

PATIENT
  Age: 83 Year
  Sex: Male

DRUGS (1)
  1. RESTASIS [Suspect]
     Active Substance: CYCLOSPORINE
     Indication: Product used for unknown indication
     Dosage: CYCLOSPORINE 0.5MG/ML EML, 0.05% INSTILLED ONE DROP IN EACH EYE TWICE A DAY
     Route: 047

REACTIONS (1)
  - Death [Fatal]

NARRATIVE: CASE EVENT DATE: 20251016
